FAERS Safety Report 16146264 (Version 1)
Quarter: 2019Q2

REPORT INFORMATION
  Report Type: Spontaneous
  Country: US (occurrence: US)
  Receive Date: 20190402
  Receipt Date: 20190402
  Transmission Date: 20190711
  Serious: No
  Sender: FDA-Public Use
  Company Number: US-PFIZER INC-2019128563

PATIENT
  Sex: Female

DRUGS (1)
  1. LEVOXYL [Suspect]
     Active Substance: LEVOTHYROXINE SODIUM
     Dosage: 112 UG, UNK [112 MCG 6 DAYS/WEEK AND ON THE SEVENTH DAY I TAKE A HALF TABLET]

REACTIONS (8)
  - Constipation [Unknown]
  - Attention deficit/hyperactivity disorder [Unknown]
  - Fatigue [Unknown]
  - Myalgia [Unknown]
  - Dry skin [Unknown]
  - Weight increased [Unknown]
  - Feeling cold [Unknown]
  - Osteoporosis [Unknown]
